FAERS Safety Report 7684336-7 (Version None)
Quarter: 2011Q3

REPORT INFORMATION
  Report Type: 
  Country: None (occurrence: None)
  Receive Date: 20110815
  Receipt Date: 20110802
  Transmission Date: 20111222
  Serious: No
  Sender: FDA-Public Use
  Company Number: US-B.I. PHARMACEUTICALS,INC./RIDGEFIELD-2011-BP-19032BP

PATIENT
  Sex: Male

DRUGS (7)
  1. POTASSIUM [Concomitant]
     Indication: BLOOD POTASSIUM ABNORMAL
     Dates: start: 20060101
  2. CLARITIN [Concomitant]
     Indication: HYPERSENSITIVITY
     Dates: start: 20060101
  3. LASIX [Concomitant]
     Indication: OEDEMA
     Dates: start: 20060101
  4. LASIX [Concomitant]
     Indication: FLUID IMBALANCE
  5. PRADAXA [Suspect]
     Indication: ATRIAL FIBRILLATION
     Dosage: 300 MG
     Route: 048
     Dates: start: 20110729
  6. ASPIRIN [Concomitant]
     Indication: ATRIAL FIBRILLATION
     Dosage: 40 MG
     Dates: start: 20060101
  7. PRAVASTATIN [Concomitant]
     Indication: BLOOD CHOLESTEROL INCREASED
     Dosage: 20 MG
     Dates: start: 20060101

REACTIONS (3)
  - ASTHENOPIA [None]
  - STRABISMUS [None]
  - FATIGUE [None]
